FAERS Safety Report 15251282 (Version 4)
Quarter: 2018Q4

REPORT INFORMATION
  Report Type: Spontaneous
  Country: JP (occurrence: JP)
  Receive Date: 20180807
  Receipt Date: 20181128
  Transmission Date: 20190204
  Serious: Yes (Life-Threatening, Other)
  Sender: FDA-Public Use
  Company Number: JP-PFIZER INC-2018310117

PATIENT
  Age: 81 Year
  Sex: Female

DRUGS (21)
  1. XELJANZ [Suspect]
     Active Substance: TOFACITINIB CITRATE
     Dosage: 5 MG, DAILY
     Route: 048
     Dates: start: 20180328
  2. METOLATE [Concomitant]
     Active Substance: METHOTREXATE
     Dosage: 4 MG, WEEKLY
     Route: 048
     Dates: start: 20130905, end: 201402
  3. METOLATE [Concomitant]
     Active Substance: METHOTREXATE
     Dosage: 10 MG, WEEKLY
     Route: 048
     Dates: start: 20150122
  4. METOLATE [Concomitant]
     Active Substance: METHOTREXATE
     Dosage: 8 MG, WEEKLY
     Route: 048
     Dates: start: 20150528
  5. METOLATE [Concomitant]
     Active Substance: METHOTREXATE
     Indication: RHEUMATOID ARTHRITIS
     Dosage: 6 MG, WEEKLY
     Route: 048
     Dates: start: 20130628
  6. METOLATE [Concomitant]
     Active Substance: METHOTREXATE
     Dosage: 6 MG, 2X/WEEK
     Route: 048
     Dates: start: 20150430
  7. METOLATE [Concomitant]
     Active Substance: METHOTREXATE
     Dosage: 14 MG, WEEKLY
     Route: 048
     Dates: start: 20160803
  8. METOLATE [Concomitant]
     Active Substance: METHOTREXATE
     Dosage: 6 MG, WEEKLY
     Route: 048
     Dates: start: 20170208
  9. XELJANZ [Suspect]
     Active Substance: TOFACITINIB CITRATE
     Dosage: 5 MG, 2X/DAY
     Route: 048
     Dates: end: 201805
  10. METOLATE [Concomitant]
     Active Substance: METHOTREXATE
     Dosage: 12 MG, WEEKLY
     Route: 048
     Dates: start: 20150219
  11. METOLATE [Concomitant]
     Active Substance: METHOTREXATE
     Dosage: UNK UNK, WEEKLY
     Route: 048
     Dates: start: 20160608
  12. METOLATE [Concomitant]
     Active Substance: METHOTREXATE
     Dosage: UNK UNK, WEEKLY
     Route: 048
     Dates: start: 20160707
  13. METOLATE [Concomitant]
     Active Substance: METHOTREXATE
     Dosage: 4 MG, WEEKLY
     Route: 048
     Dates: start: 20141106
  14. METOLATE [Concomitant]
     Active Substance: METHOTREXATE
     Dosage: 6 MG, WEEKLY
     Route: 048
     Dates: start: 20141211
  15. METOLATE [Concomitant]
     Active Substance: METHOTREXATE
     Dosage: 8 MG, WEEKLY
     Route: 048
     Dates: start: 20141225
  16. XELJANZ [Suspect]
     Active Substance: TOFACITINIB CITRATE
     Indication: RHEUMATOID ARTHRITIS
     Dosage: 5 MG, 2X/DAY
     Route: 048
     Dates: start: 20161228
  17. METOLATE [Concomitant]
     Active Substance: METHOTREXATE
     Dosage: 2 MG, WEEKLY
     Route: 048
     Dates: start: 20141003
  18. METOLATE [Concomitant]
     Active Substance: METHOTREXATE
     Dosage: 6 MG, WEEKLY
     Route: 048
     Dates: start: 20160317
  19. METOLATE [Concomitant]
     Active Substance: METHOTREXATE
     Dosage: UNK UNK, WEEKLY
     Route: 048
     Dates: start: 20160905
  20. METOLATE [Concomitant]
     Active Substance: METHOTREXATE
     Dosage: UNK UNK, WEEKLY
     Route: 048
     Dates: start: 20170118
  21. METOLATE [Concomitant]
     Active Substance: METHOTREXATE
     Dosage: 4 MG, WEEKLY
     Route: 048
     Dates: start: 20170308, end: 20170419

REACTIONS (6)
  - Colon cancer [Unknown]
  - Groin pain [Unknown]
  - Hepatic cancer [Unknown]
  - Dizziness [Recovered/Resolved]
  - Stomatitis [Unknown]
  - Condition aggravated [Unknown]

NARRATIVE: CASE EVENT DATE: 201701
